FAERS Safety Report 15584833 (Version 1)
Quarter: 2018Q4

REPORT INFORMATION
  Report Type: Spontaneous
  Country: HR (occurrence: HR)
  Receive Date: 20181105
  Receipt Date: 20181105
  Transmission Date: 20190205
  Serious: Yes (Other)
  Sender: FDA-Public Use
  Company Number: PHHY2018HR146030

PATIENT
  Age: 75 Year
  Sex: Male
  Weight: 75 kg

DRUGS (1)
  1. FLEXID [Suspect]
     Active Substance: LEVOFLOXACIN
     Indication: SKIN BACTERIAL INFECTION
     Dosage: 500 MG, QD
     Route: 048
     Dates: start: 20181004, end: 20181009

REACTIONS (2)
  - Choking [Recovered/Resolved]
  - Swollen tongue [Recovered/Resolved]

NARRATIVE: CASE EVENT DATE: 20181004
